FAERS Safety Report 12163176 (Version 1)
Quarter: 2016Q1

REPORT INFORMATION
  Report Type: Spontaneous
  Country: US (occurrence: US)
  Receive Date: 20160309
  Receipt Date: 20160309
  Transmission Date: 20160526
  Serious: No
  Sender: FDA-Public Use
  Company Number: US-ROCHE-1565987

PATIENT
  Sex: Female
  Weight: 130.75 kg

DRUGS (4)
  1. XOLAIR [Suspect]
     Active Substance: OMALIZUMAB
     Indication: ASTHMA
     Route: 058
     Dates: start: 20150225
  2. ZOFRAN [Concomitant]
     Active Substance: ONDANSETRON HYDROCHLORIDE
     Dosage: PRN
     Route: 048
     Dates: start: 20150416
  3. XOLAIR [Suspect]
     Active Substance: OMALIZUMAB
     Route: 058
     Dates: start: 20150304
  4. LORTAB (UNITED STATES) [Concomitant]
     Dosage: DOSE: 7.5- 325 MG, PRN
     Route: 048
     Dates: start: 20150416

REACTIONS (1)
  - Nausea [Recovered/Resolved]
